FAERS Safety Report 9227683 (Version 2)
Quarter: 2013Q2

REPORT INFORMATION
  Report Type: Spontaneous
  Country: US (occurrence: US)
  Receive Date: 20130412
  Receipt Date: 20130514
  Transmission Date: 20140414
  Serious: Yes (Hospitalization)
  Sender: FDA-Public Use
  Company Number: US-BAYER-2013-044892

PATIENT
  Age: 34 Year
  Sex: Female

DRUGS (5)
  1. YASMIN [Suspect]
     Dosage: UNK
     Dates: start: 2008, end: 2010
  2. YAZ [Suspect]
     Dosage: UNK
     Dates: start: 2008, end: 2010
  3. OCELLA [Suspect]
     Dosage: UNK
     Dates: start: 2008, end: 2010
  4. PERCOCET [Concomitant]
  5. AVELOX [Concomitant]

REACTIONS (8)
  - Pulmonary embolism [None]
  - Abdominal pain [None]
  - Injury [None]
  - Pain [None]
  - General physical health deterioration [None]
  - Anxiety [None]
  - Emotional distress [None]
  - Pain [None]
